FAERS Safety Report 6587736-1 (Version None)
Quarter: 2010Q1

REPORT INFORMATION
  Report Type: 
  Country: None (occurrence: None)
  Receive Date: 20100217
  Receipt Date: 20100217
  Transmission Date: 20100710
  Serious: Yes (Life-Threatening)
  Sender: FDA-Public Use
  Company Number: None

PATIENT
  Age: 57 Year
  Sex: Male
  Weight: 131.7 kg

DRUGS (1)
  1. TARCEVA [Suspect]
     Dosage: 150 MG DAILY PO
     Route: 048
     Dates: start: 20091130, end: 20091213

REACTIONS (6)
  - ACUTE RESPIRATORY FAILURE [None]
  - FLUID RETENTION [None]
  - INFECTION [None]
  - LUNG INFILTRATION [None]
  - PNEUMONITIS [None]
  - RASH [None]
